FAERS Safety Report 5408651-2 (Version None)
Quarter: 2007Q3

REPORT INFORMATION
  Report Type: 
  Country: None (occurrence: None)
  Receive Date: 20070808
  Receipt Date: 20070727
  Transmission Date: 20080115
  Serious: Yes (Other)
  Sender: FDA-Public Use
  Company Number: US-PFIZER INC-2007020141

PATIENT
  Sex: Female
  Weight: 73 kg

DRUGS (5)
  1. LIPITOR [Suspect]
     Indication: BLOOD CHOLESTEROL INCREASED
     Route: 048
     Dates: start: 19970915, end: 20060101
  2. VYTORIN [Suspect]
  3. ISOPTIN [Concomitant]
  4. HYDROCHLOROTHIAZIDE [Concomitant]
  5. AVAPRO [Concomitant]

REACTIONS (22)
  - BACK PAIN [None]
  - BLEPHAROCHALASIS [None]
  - BRONCHITIS [None]
  - CARDIAC MURMUR [None]
  - CAROTID ARTERIOSCLEROSIS [None]
  - CAROTID BRUIT [None]
  - CARPAL TUNNEL SYNDROME [None]
  - CONSTIPATION [None]
  - GOITRE [None]
  - HYPERTENSION [None]
  - LARYNGITIS [None]
  - MITRAL VALVE INCOMPETENCE [None]
  - MYALGIA [None]
  - NECK PAIN [None]
  - OSTEOARTHRITIS [None]
  - PLANTAR FASCIITIS [None]
  - POLYARTHRITIS [None]
  - SINUSITIS [None]
  - THORACIC OUTLET SYNDROME [None]
  - TRICUSPID VALVE INCOMPETENCE [None]
  - TYPE 2 DIABETES MELLITUS [None]
  - URINARY TRACT INFECTION [None]
